FAERS Safety Report 8232361-X (Version None)
Quarter: 2012Q1

REPORT INFORMATION
  Report Type: 
  Country: None (occurrence: None)
  Receive Date: 20120323
  Receipt Date: 20120319
  Transmission Date: 20120608
  Serious: Yes (Hospitalization)
  Sender: FDA-Public Use
  Company Number: US-GLAXOSMITHKLINE-A0970360A

PATIENT
  Age: 82 Year
  Sex: Female

DRUGS (7)
  1. COREG CR [Suspect]
     Indication: HYPERTENSION
     Dosage: 40MG TWICE PER DAY
     Route: 048
     Dates: start: 20050101
  2. ACCUPRIL [Concomitant]
  3. CADUET [Concomitant]
  4. PLETAL [Concomitant]
  5. HYDRALAZINE HCL [Suspect]
     Indication: HYPERTENSION
     Dosage: 25MG TWICE PER DAY
     Route: 048
     Dates: start: 20120201, end: 20120313
  6. METFORMIN HCL [Concomitant]
  7. GLYBURIDE [Concomitant]

REACTIONS (4)
  - UNDERDOSE [None]
  - DRUG INEFFECTIVE [None]
  - DRUG ADMINISTRATION ERROR [None]
  - HYPERTENSION [None]
